APPROVED DRUG PRODUCT: THIORIDAZINE HYDROCHLORIDE
Active Ingredient: THIORIDAZINE HYDROCHLORIDE
Strength: 25MG
Dosage Form/Route: TABLET;ORAL
Application: A088660 | Product #001
Applicant: WEST WARD PHARMACEUTICAL CORP
Approved: Mar 26, 1984 | RLD: No | RS: No | Type: DISCN